FAERS Safety Report 10036250 (Version 1)
Quarter: 2014Q1

REPORT INFORMATION
  Report Type: Spontaneous
  Country: BR (occurrence: BR)
  Receive Date: 20140325
  Receipt Date: 20140325
  Transmission Date: 20141002
  Serious: Yes (Hospitalization)
  Sender: FDA-Public Use
  Company Number: BR-DSJP-DSJ-2014-101834

PATIENT
  Sex: 0

DRUGS (2)
  1. OLMESARTAN MEDOXOMIL; HYDROCHLOROTHIAZIDE [Suspect]
     Indication: HYPERTENSION
     Dosage: 20/12.5 MG, QD
     Route: 048
     Dates: start: 2013
  2. MEDICINES FOR GALLBLADDER [Concomitant]
     Dosage: UNK
     Route: 065

REACTIONS (2)
  - Cholecystectomy [Recovered/Resolved]
  - Blood pressure increased [Not Recovered/Not Resolved]
